FAERS Safety Report 4789793-1 (Version None)
Quarter: 2005Q4

REPORT INFORMATION
  Report Type: 
  Country: None (occurrence: None)
  Receive Date: 20051006
  Receipt Date: 20040525
  Transmission Date: 20060501
  Serious: Yes (Hospitalization)
  Sender: FDA-Public Use
  Company Number: FR-GLAXOSMITHKLINE-B0333739A

PATIENT
  Age: 52 Year
  Sex: Male

DRUGS (11)
  1. CEFUROXIME AXETIL [Suspect]
     Indication: BRONCHITIS ACUTE
     Dosage: 250MG TWICE PER DAY
     Route: 048
     Dates: start: 20040330, end: 20040401
  2. KARDEGIC [Concomitant]
     Route: 048
  3. GINKOR FORT [Concomitant]
     Route: 048
  4. BUFLOMEDIL [Concomitant]
     Route: 048
  5. CLONAZEPAM [Concomitant]
     Route: 048
  6. ATEPADENE [Concomitant]
     Route: 048
  7. CLARADOL [Concomitant]
     Route: 048
  8. STILNOX [Concomitant]
     Route: 048
  9. LEXOMIL [Concomitant]
     Route: 048
  10. VENTOLIN [Concomitant]
     Indication: BRONCHITIS ACUTE
     Route: 055
     Dates: start: 20040330
  11. PNEUMOREL [Concomitant]
     Indication: BRONCHITIS ACUTE
     Dates: start: 20040330

REACTIONS (12)
  - ASCITES [None]
  - ASTHENIA [None]
  - BLOOD BILIRUBIN INCREASED [None]
  - CHOLESTASIS [None]
  - CHROMATURIA [None]
  - FAECES PALE [None]
  - GAMMA-GLUTAMYLTRANSFERASE INCREASED [None]
  - HEPATIC CIRRHOSIS [None]
  - HEPATITIS [None]
  - JAUNDICE [None]
  - NAUSEA [None]
  - TRANSAMINASES INCREASED [None]
